FAERS Safety Report 6369018-6 (Version None)
Quarter: 2009Q3

REPORT INFORMATION
  Report Type: 
  Country: None (occurrence: None)
  Receive Date: 20090916
  Receipt Date: 20090908
  Transmission Date: 20100115
  Serious: Yes (Hospitalization)
  Sender: FDA-Public Use
  Company Number: ADR19512009

PATIENT
  Age: 81 Year
  Sex: Male

DRUGS (1)
  1. SERTRALINE HCL [Suspect]
     Dosage: ORAL
     Route: 047

REACTIONS (5)
  - ASPARTATE AMINOTRANSFERASE INCREASED [None]
  - BLOOD ALKALINE PHOSPHATASE INCREASED [None]
  - GAMMA-GLUTAMYLTRANSFERASE INCREASED [None]
  - HAEMATEMESIS [None]
  - LIVER DISORDER [None]
